FAERS Safety Report 7056098-8 (Version None)
Quarter: 2010Q4

REPORT INFORMATION
  Report Type: 
  Country: None (occurrence: None)
  Receive Date: 20101021
  Receipt Date: 20101006
  Transmission Date: 20110411
  Serious: Yes (Other)
  Sender: FDA-Public Use
  Company Number: PHHY2010JP67521

PATIENT
  Age: 60 Year
  Sex: Female

DRUGS (1)
  1. DIOVAN [Suspect]
     Route: 048

REACTIONS (2)
  - HIP ARTHROPLASTY [None]
  - OSTEOLYSIS [None]
